FAERS Safety Report 15153603 (Version 1)
Quarter: 2018Q3

REPORT INFORMATION
  Report Type: Spontaneous
  Country: IT (occurrence: IT)
  Receive Date: 20180717
  Receipt Date: 20180717
  Transmission Date: 20181010
  Serious: Yes (Other)
  Sender: FDA-Public Use
  Company Number: IT-TEVA-2018-IT-927099

PATIENT
  Age: 58 Year
  Sex: Male

DRUGS (2)
  1. DEXAMETHASONE. [Suspect]
     Active Substance: DEXAMETHASONE
     Indication: LUMBAR HERNIA
     Dosage: 1 DOSAGE FORMS DAILY;
     Route: 048
     Dates: start: 20170825, end: 20170829
  2. DICLOFENAC [Suspect]
     Active Substance: DICLOFENAC
     Indication: LUMBAR HERNIA
     Dosage: 2 DOSAGE FORMS DAILY;
     Route: 048
     Dates: start: 20170825, end: 20170829

REACTIONS (3)
  - Labelled drug-drug interaction medication error [Recovering/Resolving]
  - Gastritis [Recovering/Resolving]
  - Abdominal pain [Recovering/Resolving]

NARRATIVE: CASE EVENT DATE: 20170829
